FAERS Safety Report 20826222 (Version 1)
Quarter: 2022Q2

REPORT INFORMATION
  Report Type: Spontaneous
  Country: US (occurrence: US)
  Receive Date: 20220513
  Receipt Date: 20220513
  Transmission Date: 20220720
  Serious: No
  Sender: FDA-Public Use
  Company Number: US-BAYER-2022A065925

PATIENT
  Sex: Female

DRUGS (1)
  1. MIRENA [Suspect]
     Active Substance: LEVONORGESTREL
     Indication: Transdermal contraception
     Dosage: 20?G/DAY
     Route: 015
     Dates: start: 20180228

REACTIONS (1)
  - Device expulsion [Recovered/Resolved]
